FAERS Safety Report 18833226 (Version 1)
Quarter: 2021Q1

REPORT INFORMATION
  Report Type: Spontaneous
  Country: PL (occurrence: PL)
  Receive Date: 20210201
  Receipt Date: 20210201
  Transmission Date: 20210419
  Serious: Yes (Hospitalization, Other)
  Sender: FDA-Public Use
  Company Number: PL-JNJFOC-20210141423

PATIENT
  Age: 69 Year
  Sex: Female

DRUGS (11)
  1. METOPROLOL. [Interacting]
     Active Substance: METOPROLOL
     Route: 065
  2. DABIGATRAN [Interacting]
     Active Substance: DABIGATRAN
     Indication: ISCHAEMIC STROKE
     Dosage: 300 MILLIGRAM DAILY;
     Route: 065
  3. AMLODIPINE + INDAPAMIDE + PERINDOPRIL [Interacting]
     Active Substance: AMLODIPINE\INDAPAMIDE\PERINDOPRIL
     Indication: PRODUCT USED FOR UNKNOWN INDICATION
     Dosage: IN THE MORNING
     Route: 065
  4. METOPROLOL. [Interacting]
     Active Substance: METOPROLOL
     Indication: PRODUCT USED FOR UNKNOWN INDICATION
     Dosage: 100 MILLIGRAM DAILY;
     Route: 065
  5. SPORANOX [Suspect]
     Active Substance: ITRACONAZOLE
     Indication: TINEA VERSICOLOUR
     Dosage: 200 MILLIGRAM DAILY;
     Route: 065
  6. PROPAFENONE. [Interacting]
     Active Substance: PROPAFENONE
     Indication: ATRIAL FIBRILLATION
     Dosage: IN CASE
     Route: 065
  7. ROSUVASTATIN. [Interacting]
     Active Substance: ROSUVASTATIN
     Indication: PRODUCT USED FOR UNKNOWN INDICATION
     Dosage: 10 MILLIGRAM DAILY;
     Route: 065
  8. NIMESULIDE [Interacting]
     Active Substance: NIMESULIDE
     Indication: ANTIINFLAMMATORY THERAPY
     Dosage: 200 MILLIGRAM DAILY;
     Route: 065
  9. KETOPROFEN. [Suspect]
     Active Substance: KETOPROFEN
     Indication: ARTHRALGIA
     Dosage: TAKEN AT MOMENTS
     Route: 065
  10. ACETYLSALICYLIC ACID [Suspect]
     Active Substance: ASPIRIN
     Indication: VIRAL INFECTION
     Route: 065
  11. NIMESULIDE [Interacting]
     Active Substance: NIMESULIDE
     Indication: ANALGESIC THERAPY

REACTIONS (2)
  - Atrioventricular block complete [Recovered/Resolved]
  - Drug interaction [Recovered/Resolved]
